FAERS Safety Report 6631603-1 (Version None)
Quarter: 2010Q1

REPORT INFORMATION
  Report Type: 
  Country: None (occurrence: None)
  Receive Date: 20100312
  Receipt Date: 20100309
  Transmission Date: 20100710
  Serious: Yes (Hospitalization)
  Sender: FDA-Public Use
  Company Number: FR-SANOFI-AVENTIS-200912503FR

PATIENT
  Age: 57 Year
  Sex: Male

DRUGS (5)
  1. RIFAMPICIN [Suspect]
     Indication: ATYPICAL MYCOBACTERIAL INFECTION
     Route: 048
     Dates: start: 20090219, end: 20090417
  2. RIMIFON [Concomitant]
     Indication: ATYPICAL MYCOBACTERIAL INFECTION
     Route: 048
     Dates: start: 20090219, end: 20090417
  3. DEXAMBUTOL [Concomitant]
     Indication: ATYPICAL MYCOBACTERIAL INFECTION
     Dosage: DOSE UNIT: 500 MG
     Route: 048
     Dates: start: 20090219, end: 20090417
  4. PIRILENE [Concomitant]
     Indication: ATYPICAL MYCOBACTERIAL INFECTION
     Dosage: DOSE UNIT: 500 MG
     Route: 048
     Dates: start: 20090219, end: 20090318
  5. ZECLAR [Concomitant]
     Indication: ATYPICAL MYCOBACTERIAL INFECTION
     Dosage: DOSE UNIT: 500 MG
     Route: 048
     Dates: start: 20090318, end: 20090417

REACTIONS (5)
  - DRUG RASH WITH EOSINOPHILIA AND SYSTEMIC SYMPTOMS [None]
  - DYSPNOEA [None]
  - EOSINOPHILIA [None]
  - INTERSTITIAL LUNG DISEASE [None]
  - RASH PRURITIC [None]
